FAERS Safety Report 18222981 (Version 1)
Quarter: 2020Q3

REPORT INFORMATION
  Report Type: Spontaneous
  Country: GB (occurrence: GB)
  Receive Date: 20200902
  Receipt Date: 20200902
  Transmission Date: 20201103
  Serious: Yes (Hospitalization, Other)
  Sender: FDA-Public Use
  Company Number: GB-BIOVITRUM-2020GB4647

PATIENT
  Age: 26 Year
  Sex: Female

DRUGS (1)
  1. ORFADIN [Suspect]
     Active Substance: NITISINONE
     Indication: TYROSINAEMIA

REACTIONS (11)
  - Muscular weakness [Unknown]
  - Respiratory failure [Unknown]
  - Neuropathy peripheral [Unknown]
  - Myopathy [Unknown]
  - Tachycardia [Unknown]
  - Abdominal pain [Unknown]
  - Vomiting [Unknown]
  - Treatment noncompliance [Unknown]
  - Generalised tonic-clonic seizure [Unknown]
  - Confusional state [Unknown]
  - Hyponatraemia [Unknown]
